FAERS Safety Report 25672849 (Version 3)
Quarter: 2025Q4

REPORT INFORMATION
  Report Type: Spontaneous
  Country: JP (occurrence: JP)
  Receive Date: 20250812
  Receipt Date: 20251014
  Transmission Date: 20260117
  Serious: Yes (Life-Threatening, Hospitalization, Other)
  Sender: GLAXOSMITHKLINE
  Company Number: JP-GSKJP-JP2025JPN102455AA

PATIENT
  Age: 75 Year
  Sex: Male
  Weight: 78.5 kg

DRUGS (4)
  1. DAPRODUSTAT [Suspect]
     Active Substance: DAPRODUSTAT
     Indication: Nephrogenic anaemia
     Dosage: UNK
  2. TENAPANOR HYDROCHLORIDE [Suspect]
     Active Substance: TENAPANOR HYDROCHLORIDE
     Indication: Hyperphosphataemia
     Dosage: 5 MG, 1D
  3. EVOCALCET [Suspect]
     Active Substance: EVOCALCET
     Indication: Hyperparathyroidism secondary
     Dosage: 1 MG, QD
  4. EVOCALCET [Suspect]
     Active Substance: EVOCALCET
     Dosage: 2 MG, QD

REACTIONS (11)
  - Portal shunt [Recovered/Resolved]
  - Depressed level of consciousness [Recovering/Resolving]
  - Fluid retention [Recovering/Resolving]
  - Metabolic encephalopathy [Recovered/Resolved]
  - Cognitive disorder [Recovered/Resolved]
  - Gait disturbance [Recovered/Resolved]
  - Hyperammonaemia [Recovered/Resolved]
  - General physical health deterioration [Unknown]
  - Essential tremor [Recovered/Resolved]
  - Pruritus [Recovered/Resolved]
  - Diarrhoea [Recovered/Resolved]

NARRATIVE: CASE EVENT DATE: 20250121
